FAERS Safety Report 21810462 (Version 1)
Quarter: 2022Q4

REPORT INFORMATION
  Report Type: Spontaneous
  Country: US (occurrence: None)
  Receive Date: 20221230
  Receipt Date: 20221230
  Transmission Date: 20230113
  Serious: Yes (Hospitalization)
  Sender: FDA-Public Use
  Company Number: None

PATIENT
  Sex: Female

DRUGS (1)
  1. NIVESTYM [Suspect]
     Active Substance: FILGRASTIM-AAFI
     Indication: Breast cancer
     Dosage: 480 MCG  SUBQ? ?INJECT 1 SYRINGE EVERY 24 HOURS FOR 2 DAYS, STARTING 24 HOURS AFTER CHEMOTHERAPY??
     Route: 058
     Dates: start: 20210604

REACTIONS (1)
  - Hospitalisation [None]
